FAERS Safety Report 24214029 (Version 1)
Quarter: 2024Q3

REPORT INFORMATION
  Report Type: Spontaneous
  Country: US (occurrence: None)
  Receive Date: 20240815
  Receipt Date: 20240815
  Transmission Date: 20241017
  Serious: Yes (Hospitalization)
  Sender: Public
  Company Number: None

PATIENT
  Sex: Female

DRUGS (2)
  1. MYCOPHENOLATE MOFETIL [Suspect]
     Active Substance: MYCOPHENOLATE MOFETIL
     Indication: Systemic lupus erythematosus
     Dosage: 1000 MG TWICE DAILY ORAL
     Route: 048
     Dates: start: 201807
  2. TOBRAMYCIN [Concomitant]

REACTIONS (3)
  - Carbon dioxide increased [None]
  - Asthma [None]
  - Secretion discharge [None]
